FAERS Safety Report 15902939 (Version 2)
Quarter: 2019Q1

REPORT INFORMATION
  Report Type: Spontaneous
  Country: US (occurrence: US)
  Receive Date: 20190202
  Receipt Date: 20190322
  Transmission Date: 20190417
  Serious: Yes (Hospitalization, Other)
  Sender: FDA-Public Use
  Company Number: US-TAKEDA-2019TUS003683

PATIENT
  Age: 26 Year
  Sex: Female
  Weight: 62.6 kg

DRUGS (8)
  1. NON-TAKEDA PRODUCT [Suspect]
     Active Substance: UNSPECIFIED INGREDIENT
     Dosage: 200 MILLIGRAM, QD
     Route: 048
     Dates: start: 20180305, end: 20181213
  2. DEXILANT [Concomitant]
     Active Substance: DEXLANSOPRAZOLE
     Indication: GASTROOESOPHAGEAL REFLUX DISEASE
     Dosage: UNK
     Route: 065
     Dates: start: 201706
  3. SULFASALAZINE. [Concomitant]
     Active Substance: SULFASALAZINE
     Indication: CROHN^S DISEASE
     Dosage: 500 MILLIGRAM
     Route: 048
     Dates: start: 20170919
  4. ZOFRAN [Concomitant]
     Active Substance: ONDANSETRON HYDROCHLORIDE
     Dosage: UNK
     Route: 065
  5. ECHINACEA+ [Concomitant]
     Dosage: UNK
     Route: 065
     Dates: start: 201610
  6. ENTOCORT [Concomitant]
     Active Substance: BUDESONIDE
     Indication: CROHN^S DISEASE
     Dosage: UNK
     Route: 065
     Dates: start: 20170627, end: 20181213
  7. NON-TAKEDA PRODUCT [Suspect]
     Active Substance: UNSPECIFIED INGREDIENT
     Indication: CROHN^S DISEASE
     Dosage: 200 MILLIGRAM, QD
     Route: 048
     Dates: start: 20180205, end: 20180305
  8. IRON [Concomitant]
     Active Substance: IRON
     Dosage: UNK
     Route: 065
     Dates: start: 2002

REACTIONS (1)
  - Intestinal obstruction [Recovered/Resolved]

NARRATIVE: CASE EVENT DATE: 20181213
